FAERS Safety Report 6443059-2 (Version None)
Quarter: 2009Q4

REPORT INFORMATION
  Report Type: 
  Country: None (occurrence: None)
  Receive Date: 20091117
  Receipt Date: 20091109
  Transmission Date: 20100525
  Serious: Yes (Hospitalization)
  Sender: FDA-Public Use
  Company Number: IT-ASTRAZENECA-2009SE25751

PATIENT
  Age: 39 Year
  Sex: Male

DRUGS (1)
  1. LUCEN [Suspect]
     Indication: GASTROOESOPHAGEAL REFLUX DISEASE
     Route: 048
     Dates: start: 20090719, end: 20090723

REACTIONS (2)
  - JOINT SWELLING [None]
  - RASH RUBELLIFORM [None]
